FAERS Safety Report 16135315 (Version 2)
Quarter: 2019Q3

REPORT INFORMATION
  Report Type: Spontaneous
  Country: US (occurrence: US)
  Receive Date: 20190329
  Receipt Date: 20190927
  Transmission Date: 20191004
  Serious: No
  Sender: FDA-Public Use
  Company Number: US-SA-2019SA082876

PATIENT
  Sex: Male

DRUGS (9)
  1. LINZESS [Concomitant]
     Active Substance: LINACLOTIDE
  2. AVODART [Concomitant]
     Active Substance: DUTASTERIDE
  3. CANASA [Concomitant]
     Active Substance: MESALAMINE
  4. CARBAMAZEPIN [Concomitant]
     Active Substance: CARBAMAZEPINE
  5. LIALDA [Concomitant]
     Active Substance: MESALAMINE
  6. AUBAGIO [Suspect]
     Active Substance: TERIFLUNOMIDE
     Indication: PRODUCT USED FOR UNKNOWN INDICATION
     Dosage: 1 DF, QD
     Route: 048
  7. DUTASTERIDE. [Concomitant]
     Active Substance: DUTASTERIDE
  8. ROSUVASTATIN CALCIUM. [Concomitant]
     Active Substance: ROSUVASTATIN CALCIUM
  9. ASPIRIN [ACETYLSALICYLIC ACID] [Concomitant]
     Active Substance: ASPIRIN

REACTIONS (1)
  - Product dose omission [Unknown]
